FAERS Safety Report 14778729 (Version 1)
Quarter: 2018Q2

REPORT INFORMATION
  Report Type: Spontaneous
  Country: US (occurrence: US)
  Receive Date: 20180419
  Receipt Date: 20180419
  Transmission Date: 20180711
  Serious: No
  Sender: FDA-Public Use
  Company Number: US-BAYER-2018-070907

PATIENT
  Age: 48 Year
  Sex: Female

DRUGS (1)
  1. CLIMARA PRO [Suspect]
     Active Substance: ESTRADIOL\LEVONORGESTREL
     Indication: HORMONE REPLACEMENT THERAPY
     Dosage: UNK
     Route: 062
     Dates: start: 201801

REACTIONS (6)
  - Wrong technique in device usage process [None]
  - Wrong technique in product usage process [None]
  - Product physical issue [None]
  - Hot flush [None]
  - Product adhesion issue [None]
  - Device material issue [None]

NARRATIVE: CASE EVENT DATE: 201801
